FAERS Safety Report 4520943-8 (Version None)
Quarter: 2004Q4

REPORT INFORMATION
  Report Type: 
  Country: None (occurrence: None)
  Receive Date: 20041208
  Receipt Date: 20041129
  Transmission Date: 20050328
  Serious: Yes (Hospitalization, Other)
  Sender: FDA-Public Use
  Company Number: PHNR2004AU01696

PATIENT
  Age: 19 Year
  Sex: Female

DRUGS (2)
  1. SANDIMMUNE [Suspect]
     Indication: COLITIS ULCERATIVE
     Dosage: UNSPECIFIED
     Route: 042
     Dates: start: 20041001, end: 20041001
  2. DILANTIN [Suspect]
     Indication: CONVULSION
     Dates: start: 20041001, end: 20041001

REACTIONS (4)
  - CONVULSION [None]
  - DRUG HYPERSENSITIVITY [None]
  - PYREXIA [None]
  - RASH GENERALISED [None]
